FAERS Safety Report 16475735 (Version 3)
Quarter: 2019Q3

REPORT INFORMATION
  Report Type: Report from Study
  Country: US (occurrence: US)
  Receive Date: 20190625
  Receipt Date: 20190816
  Transmission Date: 20191004
  Serious: Yes (Other)
  Sender: FDA-Public Use
  Company Number: US-ALEXION PHARMACEUTICALS INC.-A201909362

PATIENT
  Sex: Female
  Weight: 43.84 kg

DRUGS (1)
  1. SOLIRIS [Suspect]
     Active Substance: ECULIZUMAB
     Indication: PRODUCT USED FOR UNKNOWN INDICATION
     Dosage: UNK
     Route: 065

REACTIONS (12)
  - Fall [Unknown]
  - Nausea [Unknown]
  - Joint dislocation [Unknown]
  - Incisional hernia [Unknown]
  - Weight decreased [Unknown]
  - Vomiting [Unknown]
  - Productive cough [Unknown]
  - Laryngitis [Unknown]
  - Platelet count decreased [Unknown]
  - Cough [Unknown]
  - Musculoskeletal chest pain [Unknown]
  - Bronchitis [Unknown]
